FAERS Safety Report 8106739-9 (Version None)
Quarter: 2012Q1

REPORT INFORMATION
  Report Type: 
  Country: None (occurrence: None)
  Receive Date: 20120130
  Receipt Date: 20120116
  Transmission Date: 20120608
  Serious: Yes (Death, Life-Threatening, Hospitalization, Disabling, Other)
  Sender: FDA-Public Use
  Company Number: 2012MA000877

PATIENT
  Sex: Female
  Weight: 72.5755 kg

DRUGS (40)
  1. ATIVAN [Concomitant]
  2. GLUCOTROL [Concomitant]
  3. INSULIN [Concomitant]
  4. NITROGLYCERIN [Concomitant]
  5. NYSTATIN [Concomitant]
  6. REGLAN [Concomitant]
  7. APAP TAB [Concomitant]
  8. DIGOXIN [Suspect]
     Dosage: 0.125 MG;QD
  9. BAZA [Concomitant]
  10. CARDIZEM [Concomitant]
  11. COLACE [Concomitant]
  12. HYDRALAZINE HCL [Concomitant]
  13. NOVOLIN 70/30 [Concomitant]
  14. RANITIDINE [Concomitant]
  15. ZANTAC [Concomitant]
  16. CLARITIN [Concomitant]
  17. CLONIDINE [Concomitant]
  18. COUMADIN [Concomitant]
  19. DILTIAZEM HCL [Concomitant]
  20. LANSOPRAZOLE [Concomitant]
  21. MILK OF MAGNESIA TAB [Concomitant]
  22. ALBUTEROL [Concomitant]
  23. DECADRON [Concomitant]
  24. ARMODAFINIL [Concomitant]
  25. LEVAQUIN [Concomitant]
  26. METFORMIN HCL [Concomitant]
  27. PHENERGAN [Concomitant]
  28. DUONEB [Concomitant]
  29. IPRATROPIUM BROMIDE [Concomitant]
  30. CRODARONE [Concomitant]
  31. PREVACID [Concomitant]
  32. ASPIRIN [Concomitant]
  33. ENOXAPARIN [Concomitant]
  34. GLUCAGEN [Concomitant]
  35. LANTUS [Concomitant]
  36. ALOE-VESTA [Concomitant]
  37. ATROVENT [Concomitant]
  38. CLINDAMYCIN [Concomitant]
  39. HYDROCHLOROTHIAZIDE [Concomitant]
  40. ONDANSETRON HCL [Concomitant]

REACTIONS (55)
  - ATRIAL FIBRILLATION [None]
  - HYPOKALAEMIA [None]
  - TYPE 2 DIABETES MELLITUS [None]
  - URINARY TRACT INFECTION [None]
  - BLOOD MAGNESIUM DECREASED [None]
  - DEHYDRATION [None]
  - MITRAL VALVE CALCIFICATION [None]
  - TRICUSPID VALVE INCOMPETENCE [None]
  - RESPIRATORY DISTRESS [None]
  - MYOCARDIAL INFARCTION [None]
  - ANKLE FRACTURE [None]
  - ORTHOSTATIC HYPERTENSION [None]
  - DYSPNOEA [None]
  - SKIN ULCER [None]
  - CHOKING [None]
  - VENTRICULAR EXTRASYSTOLES [None]
  - FALL [None]
  - BLOOD PRESSURE DECREASED [None]
  - DYSLIPIDAEMIA [None]
  - GASTROOESOPHAGEAL REFLUX DISEASE [None]
  - CARDIAC FAILURE CONGESTIVE [None]
  - DYSPHAGIA [None]
  - CLOSTRIDIUM DIFFICILE COLITIS [None]
  - DEMENTIA [None]
  - LARYNGEAL OEDEMA [None]
  - VENTRICULAR HYPERTROPHY [None]
  - ELECTROCARDIOGRAM ST-T CHANGE [None]
  - HYPOTHYROIDISM [None]
  - SLEEP APNOEA SYNDROME [None]
  - LARYNGEAL STENOSIS [None]
  - RESPIRATORY FAILURE [None]
  - ASPIRATION [None]
  - NAUSEA [None]
  - COUGH [None]
  - BLINDNESS UNILATERAL [None]
  - ASTHMA [None]
  - HYPOTENSION [None]
  - UPPER AIRWAY OBSTRUCTION [None]
  - DIZZINESS [None]
  - VOMITING [None]
  - EXCORIATION [None]
  - OEDEMA PERIPHERAL [None]
  - SEPSIS [None]
  - MALNUTRITION [None]
  - STRIDOR [None]
  - LEFT ATRIAL DILATATION [None]
  - HYPERTENSION [None]
  - RENAL FAILURE ACUTE [None]
  - IMPAIRED SELF-CARE [None]
  - SYNCOPE [None]
  - HYPOPROTEINAEMIA [None]
  - PNEUMONIA [None]
  - BRONCHOSPASM [None]
  - MITRAL VALVE INCOMPETENCE [None]
  - SUPRAVENTRICULAR EXTRASYSTOLES [None]
